FAERS Safety Report 9134710 (Version 1)
Quarter: 2013Q1

REPORT INFORMATION
  Report Type: Spontaneous
  Country: US (occurrence: None)
  Receive Date: 20130205
  Receipt Date: 20130205
  Transmission Date: 20140127
  Serious: Yes (Hospitalization)
  Sender: FDA-Public Use
  Company Number: 2012-1208

PATIENT
  Sex: Male

DRUGS (1)
  1. KYPROLIS (CARFILZOMIB)(INJECTION FOR INFUSION)(CARFILZOMIB) [Suspect]
     Indication: PLASMA CELL MYELOMA
     Route: 042

REACTIONS (4)
  - Post procedural haemorrhage [None]
  - Respiratory distress [None]
  - Chest pain [None]
  - Dyspnoea [None]
